FAERS Safety Report 5347016-9 (Version None)
Quarter: 2007Q2

REPORT INFORMATION
  Report Type: 
  Country: None (occurrence: None)
  Receive Date: 20070604
  Receipt Date: 20070521
  Transmission Date: 20071010
  Serious: Yes (Other)
  Sender: FDA-Public Use
  Company Number: 02100-EUR-07-0078

PATIENT

DRUGS (3)
  1. CILOSTAZOL [Suspect]
     Dosage: ORAL
     Route: 048
  2. ACETYLSALICYLIC ACID SRT [Suspect]
     Dosage: ORAL
     Route: 048
  3. CLOPIDOGREL [Suspect]
     Dosage: ORAL
     Route: 048

REACTIONS (2)
  - DRUG INTERACTION [None]
  - GASTRIC ULCER HAEMORRHAGE [None]
